FAERS Safety Report 7512913-2 (Version None)
Quarter: 2011Q2

REPORT INFORMATION
  Report Type: 
  Country: None (occurrence: None)
  Receive Date: 20110531
  Receipt Date: 20101118
  Transmission Date: 20111010
  Serious: No
  Sender: FDA-Public Use
  Company Number: US-NOVEN-ALL1-2010-06110

PATIENT
  Sex: Male
  Weight: 19.501 kg

DRUGS (3)
  1. DAYTRANA [Suspect]
     Dosage: 20 MG, 1X/DAY:QD
     Route: 062
     Dates: start: 20100923
  2. ABILIFY [Concomitant]
     Dosage: 5 MG, 1X/DAY:QD
     Route: 048
     Dates: start: 20100923
  3. CLONIDINE [Concomitant]
     Dosage: 0.1 MG, 1X/DAY:QD
     Route: 048
     Dates: start: 20090101

REACTIONS (3)
  - PRODUCT QUALITY ISSUE [None]
  - DRUG INEFFECTIVE [None]
  - DRUG EFFECT DECREASED [None]
